FAERS Safety Report 8901398 (Version 2)
Quarter: 2012Q4

REPORT INFORMATION
  Report Type: 
  Country: JP (occurrence: JP)
  Receive Date: 20121109
  Receipt Date: 20121121
  Transmission Date: 20130627
  Serious: Yes (Other)
  Sender: FDA-Public Use
  Company Number: JP-JNJFOC-20121015788

PATIENT
  Age: 64 Year
  Sex: Female
  Weight: 40 kg

DRUGS (18)
  1. REMICADE [Suspect]
     Indication: RHEUMATOID ARTHRITIS
     Dosage: seventh dose
     Route: 042
     Dates: start: 20121009
  2. REMICADE [Suspect]
     Indication: RHEUMATOID ARTHRITIS
     Dosage: second dose
     Route: 042
     Dates: start: 20120209
  3. REMICADE [Suspect]
     Indication: RHEUMATOID ARTHRITIS
     Dosage: forth dose
     Route: 042
     Dates: start: 20120501
  4. REMICADE [Suspect]
     Indication: RHEUMATOID ARTHRITIS
     Dosage: fifth dose
     Route: 042
     Dates: start: 20120626
  5. REMICADE [Suspect]
     Indication: RHEUMATOID ARTHRITIS
     Dosage: third dose
     Route: 042
  6. REMICADE [Suspect]
     Indication: RHEUMATOID ARTHRITIS
     Dosage: 1st infusion
     Route: 042
     Dates: start: 20120126
  7. REMICADE [Suspect]
     Indication: RHEUMATOID ARTHRITIS
     Dosage: sixth dose
     Route: 042
     Dates: start: 20120821
  8. METHOTREXATE [Concomitant]
     Indication: RHEUMATOID ARTHRITIS
     Route: 048
  9. PREDONINE [Concomitant]
     Indication: RHEUMATOID ARTHRITIS
     Route: 048
  10. FORTEO [Concomitant]
     Indication: OSTEOPOROSIS
     Route: 058
     Dates: start: 201111
  11. FOLIAMIN [Concomitant]
     Indication: FOLATE DEFICIENCY
     Route: 048
     Dates: start: 20120126
  12. CELECOX [Concomitant]
     Indication: RHEUMATOID ARTHRITIS
     Route: 048
  13. MUCOSTA [Concomitant]
     Indication: GASTRITIS
     Route: 048
  14. PARIET [Concomitant]
     Indication: GASTRIC ULCER
     Route: 048
  15. LOXONIN [Concomitant]
     Indication: RHEUMATOID ARTHRITIS
     Route: 065
  16. LENDORMIN [Concomitant]
     Indication: INSOMNIA
     Route: 048
  17. BLOPRESS [Concomitant]
     Indication: HYPERTENSION
     Route: 048
  18. XYZAL [Concomitant]
     Indication: PREMEDICATION
     Route: 048

REACTIONS (7)
  - Infusion related reaction [Recovered/Resolved]
  - Chest discomfort [Recovered/Resolved]
  - Dyspnoea [Recovered/Resolved]
  - Blood pressure decreased [Recovered/Resolved]
  - Feeling abnormal [Recovering/Resolving]
  - Oxygen saturation decreased [Recovered/Resolved]
  - Arthralgia [Unknown]
